FAERS Safety Report 8552064-1 (Version None)
Quarter: 2012Q3

REPORT INFORMATION
  Report Type: 
  Country: None (occurrence: None)
  Receive Date: 20120731
  Receipt Date: 20120716
  Transmission Date: 20120928
  Serious: Yes (Hospitalization)
  Sender: FDA-Public Use
  Company Number: SE-AMGEN-US381595

PATIENT
  Age: 49 Year
  Sex: Female

DRUGS (3)
  1. PREDNISOLONE [Concomitant]
     Dosage: UNK
  2. ETANERCEPT [Suspect]
     Indication: ANKYLOSING SPONDYLITIS
     Dosage: UNK
     Dates: start: 20051108, end: 20060113
  3. METHOTREXATE [Concomitant]
     Dosage: UNK

REACTIONS (4)
  - HYPOCHROMIC ANAEMIA [None]
  - INFECTION SUSCEPTIBILITY INCREASED [None]
  - HYPOKALAEMIA [None]
  - CLOSTRIDIAL INFECTION [None]
